FAERS Safety Report 4363061-4 (Version None)
Quarter: 2004Q2

REPORT INFORMATION
  Report Type: 
  Country: None (occurrence: None)
  Receive Date: 20040519
  Receipt Date: 20040506
  Transmission Date: 20050107
  Serious: Yes (Hospitalization)
  Sender: FDA-Public Use
  Company Number: PERI00204001317

PATIENT
  Age: 65 Year
  Sex: Female

DRUGS (5)
  1. COVERSYL (PERINDOPRIL) [Suspect]
     Indication: HYPERTENSION
     Dosage: 2 MG QD PO
     Route: 048
     Dates: start: 20040222, end: 20040318
  2. ADCAL D3 (CARBAZOCHROME) [Concomitant]
  3. CO-CODAMOL (CODEINE PHOSPHATE) [Concomitant]
  4. NITROGLYCERIN [Concomitant]
  5. AMITRIPTHYLINE (AMITRIPTYLINE) [Concomitant]

REACTIONS (3)
  - CHOLANGITIS [None]
  - JAUNDICE CHOLESTATIC [None]
  - PORTAL TRIADITIS [None]
